FAERS Safety Report 11832873 (Version 1)
Quarter: 2015Q4

REPORT INFORMATION
  Report Type: Spontaneous
  Country: AT (occurrence: AT)
  Receive Date: 20151214
  Receipt Date: 20151214
  Transmission Date: 20160305
  Serious: Yes (Other)
  Sender: FDA-Public Use
  Company Number: AT-PFIZER INC-2015383119

PATIENT
  Age: 82 Year
  Sex: Male

DRUGS (6)
  1. RENITEC /00574902/ [Suspect]
     Active Substance: ENALAPRIL MALEATE
     Dosage: UNK
  2. SINTROM [Suspect]
     Active Substance: ACENOCOUMAROL
     Dosage: UNK
  3. BURONIL [Suspect]
     Active Substance: MELPERONE HYDROCHLORIDE
     Dosage: UNK
  4. PASPERTIN /00041902/ [Suspect]
     Active Substance: METOCLOPRAMIDE HYDROCHLORIDE
     Dosage: UNK
  5. PANTOLOC [Suspect]
     Active Substance: PANTOPRAZOLE SODIUM
     Dosage: UNK
     Route: 065
  6. LAEVOLAC [Suspect]
     Active Substance: LACTULOSE
     Dosage: UNK

REACTIONS (9)
  - Circulatory collapse [Unknown]
  - Hypophagia [Unknown]
  - General physical health deterioration [Unknown]
  - Abdominal pain [Unknown]
  - Fluid intake reduced [Unknown]
  - Chills [Unknown]
  - Asthenia [Unknown]
  - Vomiting [Unknown]
  - Diarrhoea [Unknown]
